FAERS Safety Report 20172687 (Version 1)
Quarter: 2021Q4

REPORT INFORMATION
  Report Type: Spontaneous
  Country: GR (occurrence: GR)
  Receive Date: 20211211
  Receipt Date: 20211211
  Transmission Date: 20220303
  Serious: Yes (Other)
  Sender: FDA-Public Use
  Company Number: GR-002147023-NVSC2021GR248732

PATIENT
  Age: 74 Year
  Sex: Male

DRUGS (1)
  1. XOLAIR [Suspect]
     Active Substance: OMALIZUMAB
     Indication: Blood cholesterol
     Route: 065

REACTIONS (4)
  - Renal impairment [Recovered/Resolved]
  - Transaminases increased [Not Recovered/Not Resolved]
  - Dyslipidaemia [Unknown]
  - Creatinine urine increased [Not Recovered/Not Resolved]
